FAERS Safety Report 8848615 (Version 1)
Quarter: 2012Q4

REPORT INFORMATION
  Report Type: Spontaneous
  Country: CN (occurrence: None)
  Receive Date: 20121015
  Receipt Date: 20121015
  Transmission Date: 20130627
  Serious: Yes (Hospitalization)
  Sender: FDA-Public Use
  Company Number: 2012000224

PATIENT
  Age: 90 Year
  Sex: Male
  Weight: 70 kg

DRUGS (1)
  1. ACEON [Suspect]
     Indication: HYPERTENSION
     Route: 048
     Dates: start: 20110502, end: 20110503

REACTIONS (3)
  - Coronary artery disease [None]
  - Rash maculo-papular [None]
  - Disease recurrence [None]
